FAERS Safety Report 9011958 (Version 1)
Quarter: 2012Q4

REPORT INFORMATION
  Report Type: Spontaneous
  Country: US (occurrence: None)
  Receive Date: 20121228
  Receipt Date: 20121228
  Transmission Date: 20130627
  Serious: Yes (Hospitalization, Other)
  Sender: FDA-Public Use
  Company Number: VAL_01184_2012

PATIENT
  Age: 26 Year
  Sex: Male

DRUGS (1)
  1. CARBAMAZEPINE (CARBAMAZEPINE) CHEWABLE TABLET [Suspect]
     Indication: FAMILIAL RISK FACTOR

REACTIONS (10)
  - Maternal drugs affecting foetus [None]
  - Limb deformity [None]
  - Limb reduction defect [None]
  - Haemangioma congenital [None]
  - Low set ears [None]
  - Brachydactyly [None]
  - High arched palate [None]
  - Talipes [None]
  - Joint range of motion decreased [None]
  - Bone disorder [None]
